FAERS Safety Report 5127900-1 (Version None)
Quarter: 2006Q4

REPORT INFORMATION
  Report Type: 
  Country: None (occurrence: None)
  Receive Date: 20061016
  Receipt Date: 20060602
  Transmission Date: 20070319
  Serious: Yes (Hospitalization)
  Sender: FDA-Public Use
  Company Number: US-ABBOTT-06P-163-0334925-00

PATIENT
  Sex: Male
  Weight: 93.978 kg

DRUGS (5)
  1. HUMIRA [Suspect]
     Indication: RHEUMATOID ARTHRITIS
     Route: 058
     Dates: start: 20050701, end: 20060304
  2. HUMIRA [Suspect]
     Route: 058
     Dates: start: 20060415, end: 20060624
  3. FOLIC ACID [Concomitant]
     Indication: RHEUMATOID ARTHRITIS
     Route: 048
     Dates: start: 20010101
  4. METHYLPREDNISOLONE [Concomitant]
     Indication: RHEUMATOID ARTHRITIS
     Route: 048
     Dates: start: 20010101
  5. OMEPRAZOLE [Concomitant]
     Indication: STOMACH DISCOMFORT
     Route: 048
     Dates: start: 20050701

REACTIONS (4)
  - ABASIA [None]
  - HERPES ZOSTER [None]
  - JOINT LOCK [None]
  - RASH GENERALISED [None]
